FAERS Safety Report 23175821 (Version 1)
Quarter: 2023Q4

REPORT INFORMATION
  Report Type: Report from Study
  Country: FR (occurrence: FR)
  Receive Date: 20231113
  Receipt Date: 20231113
  Transmission Date: 20240109
  Serious: Yes (Life-Threatening, Hospitalization)
  Sender: FDA-Public Use
  Company Number: FR-ROCHE-3445965

PATIENT
  Age: 49 Year
  Sex: Female
  Weight: 58 kg

DRUGS (4)
  1. BEVACIZUMAB [Suspect]
     Active Substance: BEVACIZUMAB
     Indication: Neoplasm
     Dosage: 400 MILLIGRAM, Q6WK
     Route: 042
     Dates: start: 20220624, end: 20220624
  2. CARBOPLATIN [Suspect]
     Active Substance: CARBOPLATIN
     Indication: Neoplasm
     Dosage: 400 MILLIGRAM, Q3WK (MOST RECENT DOSE WAS ADMINISTERED ON 27/MAY/2022.)
     Route: 040
     Dates: start: 20220211, end: 20220527
  3. DOXORUBICIN [Suspect]
     Active Substance: DOXORUBICIN
     Indication: Neoplasm
     Dosage: 40 MILLIGRAM, Q3WK (MOST RECENT DOSE WAS ADMINISTERED ON 27/MAY/2022.)
     Route: 040
     Dates: start: 20220211, end: 20220527
  4. WHOLE BLOOD [Concomitant]
     Active Substance: WHOLE BLOOD
     Dosage: UNK

REACTIONS (1)
  - Sepsis [Recovered/Resolved]

NARRATIVE: CASE EVENT DATE: 20220716
